FAERS Safety Report 9158113 (Version 2)
Quarter: 2013Q2

REPORT INFORMATION
  Report Type: Spontaneous
  Country: DE (occurrence: DE)
  Receive Date: 20130312
  Receipt Date: 20130517
  Transmission Date: 20140414
  Serious: Yes (Death, Hospitalization)
  Sender: FDA-Public Use
  Company Number: DE-ROCHE-1200620

PATIENT
  Age: 82 Year
  Sex: Female
  Weight: 67 kg

DRUGS (14)
  1. MABTHERA [Suspect]
     Indication: DIFFUSE LARGE B-CELL LYMPHOMA
     Route: 042
     Dates: start: 20120724, end: 20121022
  2. CYCLOPHOSPHAMID [Suspect]
     Indication: DIFFUSE LARGE B-CELL LYMPHOMA
     Route: 065
     Dates: start: 20120724
  3. VINCRISTIN [Suspect]
     Indication: DIFFUSE LARGE B-CELL LYMPHOMA
     Route: 065
     Dates: start: 20120724, end: 20120910
  4. PREDNISONE [Suspect]
     Indication: DIFFUSE LARGE B-CELL LYMPHOMA
     Route: 048
     Dates: start: 20120724, end: 20121026
  5. DOXORUBICIN [Suspect]
     Indication: DIFFUSE LARGE B-CELL LYMPHOMA
     Route: 065
     Dates: start: 20120724
  6. MCP [Concomitant]
     Indication: NAUSEA
     Route: 065
  7. BISOPROLOL [Concomitant]
     Indication: HYPERTENSION
     Route: 065
  8. OMEP [Concomitant]
     Indication: NAUSEA
     Route: 065
  9. OMEP [Concomitant]
     Indication: GASTRITIS
  10. ALLOPURINOL [Concomitant]
     Indication: HYPERURICAEMIA
     Route: 065
     Dates: start: 201207
  11. CITALOPRAM [Concomitant]
  12. ACICLOVIR [Concomitant]
     Indication: HERPES SIMPLEX
     Route: 061
  13. MESNA [Concomitant]
     Route: 065
  14. ONDANSETRON [Concomitant]
     Indication: THROMBOSIS PROPHYLAXIS
     Route: 058

REACTIONS (9)
  - Pancytopenia [Fatal]
  - Escherichia sepsis [Unknown]
  - Systemic inflammatory response syndrome [Fatal]
  - Delirium [Unknown]
  - Gastrointestinal toxicity [Fatal]
  - Colitis [Fatal]
  - Thrombocytopenia [Fatal]
  - Multi-organ failure [Fatal]
  - Sepsis [Fatal]
